FAERS Safety Report 11124084 (Version 1)
Quarter: 2015Q2

REPORT INFORMATION
  Report Type: Spontaneous
  Country: US (occurrence: None)
  Receive Date: 20150519
  Receipt Date: 20150519
  Transmission Date: 20150821
  Serious: Yes (Death)
  Sender: FDA-Public Use
  Company Number: None

PATIENT
  Age: 68 Year
  Sex: Female
  Weight: 81.7 kg

DRUGS (1)
  1. XARELTO [Suspect]
     Active Substance: RIVAROXABAN
     Indication: ATRIAL FIBRILLATION
     Dosage: 1 QD ORAL
     Route: 048
     Dates: start: 20130622, end: 20150508

REACTIONS (4)
  - Hydrocephalus [None]
  - Haemorrhage intracranial [None]
  - Lethargy [None]
  - Confusional state [None]

NARRATIVE: CASE EVENT DATE: 20150508
